FAERS Safety Report 19436142 (Version 6)
Quarter: 2021Q3

REPORT INFORMATION
  Report Type: Report from Study
  Country: IL (occurrence: IL)
  Receive Date: 20210618
  Receipt Date: 20210830
  Transmission Date: 20211014
  Serious: Yes (Hospitalization, Other)
  Sender: FDA-Public Use
  Company Number: IL-JNJFOC-20210635391

PATIENT
  Age: 64 Year
  Sex: Female

DRUGS (3)
  1. SIMPONI [Suspect]
     Active Substance: GOLIMUMAB
     Indication: RHEUMATOID ARTHRITIS
     Route: 058
     Dates: start: 20210318
  2. SIMPONI [Suspect]
     Active Substance: GOLIMUMAB
  3. INSULIN [Concomitant]
     Active Substance: INSULIN NOS
     Dosage: 10 DAYS AGO

REACTIONS (4)
  - Bacteraemia [Recovered/Resolved]
  - Diabetes mellitus [Recovered/Resolved]
  - Oedema peripheral [Recovering/Resolving]
  - Rheumatoid arthritis [Recovered/Resolved]

NARRATIVE: CASE EVENT DATE: 20210616
